FAERS Safety Report 8212159-9 (Version None)
Quarter: 2012Q1

REPORT INFORMATION
  Report Type: 
  Country: None (occurrence: None)
  Receive Date: 20120315
  Receipt Date: 20120312
  Transmission Date: 20120608
  Serious: Yes (Hospitalization, Other)
  Sender: FDA-Public Use
  Company Number: PHEH2012US005663

PATIENT
  Sex: Female

DRUGS (6)
  1. NORVASC [Concomitant]
     Dosage: 2.5 MG, UNK
  2. NEXIUM [Concomitant]
     Dosage: 40 MG, UNK
  3. ANASTROZOLE [Concomitant]
     Dosage: 1 MG, UNK
  4. PRAVASTATIN [Concomitant]
     Dosage: 10 MG, UNK
  5. OSCAL 500-D [Concomitant]
  6. EXJADE [Suspect]
     Dosage: 125 MG, DAILY
     Route: 048

REACTIONS (2)
  - HAEMORRHAGE [None]
  - THROMBOSIS [None]
